FAERS Safety Report 14348525 (Version 3)
Quarter: 2019Q1

REPORT INFORMATION
  Report Type: Spontaneous
  Country: GB (occurrence: GB)
  Receive Date: 20180103
  Receipt Date: 20190321
  Transmission Date: 20190417
  Serious: Yes (Death, Hospitalization)
  Sender: FDA-Public Use
  Company Number: GB-MYLANLABS-2017M1082236

PATIENT
  Sex: Female

DRUGS (2)
  1. CLOZARIL [Suspect]
     Active Substance: CLOZAPINE
     Indication: SCHIZOPHRENIA
     Dosage: UNK
     Route: 048
     Dates: start: 19950523
  2. CLOZARIL [Suspect]
     Active Substance: CLOZAPINE
     Indication: SCHIZOAFFECTIVE DISORDER
     Dosage: UNK
     Route: 048
     Dates: start: 20190311, end: 20190314

REACTIONS (5)
  - Lower respiratory tract infection [Unknown]
  - Death [Fatal]
  - Product use in unapproved indication [Unknown]
  - Respiratory failure [Unknown]
  - Hypoventilation [Unknown]

NARRATIVE: CASE EVENT DATE: 2017
